FAERS Safety Report 8465877-1 (Version None)
Quarter: 2012Q2

REPORT INFORMATION
  Report Type: 
  Country: None (occurrence: None)
  Receive Date: 20120626
  Receipt Date: 20120620
  Transmission Date: 20120825
  Serious: Yes (Hospitalization, Other)
  Sender: FDA-Public Use
  Company Number: US-PFIZER INC-2012132669

PATIENT
  Sex: Female

DRUGS (7)
  1. VENLAFAXINE [Suspect]
     Dosage: UNK
  2. LISINOPRIL [Suspect]
     Indication: HYPERTENSION
     Dosage: UNK
  3. EFFEXOR XR [Suspect]
     Indication: DEPRESSION
     Dosage: 75 MG, 1X/DAY
     Route: 048
     Dates: start: 20120301, end: 20120101
  4. EFFEXOR XR [Suspect]
     Dosage: 150 MG, 1X/DAY
     Route: 048
     Dates: start: 20120101, end: 20120531
  5. CALCIUM [Concomitant]
     Dosage: UNK
  6. EFFEXOR [Suspect]
     Indication: DEPRESSION
     Dosage: 37.5 MG, 1X/DAY
     Route: 048
     Dates: start: 20120101, end: 20120301
  7. TOPAMAX [Suspect]
     Indication: CONVULSION
     Dosage: UNK
     Dates: start: 20070101

REACTIONS (3)
  - DEPRESSION [None]
  - GRAND MAL CONVULSION [None]
  - PETIT MAL EPILEPSY [None]
